FAERS Safety Report 8531935-6 (Version None)
Quarter: 2012Q3

REPORT INFORMATION
  Report Type: 
  Country: None (occurrence: None)
  Receive Date: 20120723
  Receipt Date: 20120716
  Transmission Date: 20120928
  Serious: Yes (Other)
  Sender: FDA-Public Use
  Company Number: US-ABBOTT-12P-163-0957692-00

PATIENT
  Sex: Male
  Weight: 90.8 kg

DRUGS (4)
  1. CELEBREX [Concomitant]
     Indication: RHEUMATOID ARTHRITIS
  2. METHOTREXATE [Concomitant]
     Indication: RHEUMATOID ARTHRITIS
  3. HUMIRA [Suspect]
     Indication: RHEUMATOID ARTHRITIS
     Dates: start: 20120101
  4. FOLIC ACID [Concomitant]
     Indication: VITAMIN SUPPLEMENTATION

REACTIONS (4)
  - RHEUMATOID ARTHRITIS [None]
  - INJECTION SITE SCAB [None]
  - CARPAL TUNNEL SYNDROME [None]
  - NERVE COMPRESSION [None]
